FAERS Safety Report 22218972 (Version 1)
Quarter: 2023Q2

REPORT INFORMATION
  Report Type: Spontaneous
  Country: CN (occurrence: CN)
  Receive Date: 20230417
  Receipt Date: 20230417
  Transmission Date: 20230721
  Serious: Yes (Life-Threatening, Hospitalization)
  Sender: FDA-Public Use
  Company Number: CN-BAYER-2023A046985

PATIENT
  Sex: Female

DRUGS (1)
  1. GADOBUTROL [Suspect]
     Active Substance: GADOBUTROL
     Indication: Magnetic resonance imaging abdominal
     Dosage: 7.5 ML, ONCE
     Route: 042
     Dates: start: 20230408, end: 20230408

REACTIONS (6)
  - Anaphylactic shock [Recovering/Resolving]
  - Pharyngeal oedema [None]
  - Feeling cold [None]
  - Unresponsive to stimuli [None]
  - Cardiac arrest [Recovering/Resolving]
  - Nausea [None]

NARRATIVE: CASE EVENT DATE: 20230408
